FAERS Safety Report 19840820 (Version 2)
Quarter: 2021Q4

REPORT INFORMATION
  Report Type: Spontaneous
  Country: US (occurrence: US)
  Receive Date: 20210916
  Receipt Date: 20211014
  Transmission Date: 20220303
  Serious: No
  Sender: FDA-Public Use
  Company Number: US-PFIZER INC-2019232375

PATIENT
  Age: 87 Year
  Sex: Male
  Weight: 104 kg

DRUGS (2)
  1. LYRICA [Suspect]
     Active Substance: PREGABALIN
     Indication: Diabetic neuropathy
     Dosage: 75 MG, 2X/DAY (FOR 180 DAYS) (1 CAPSULE BY MOUTH 2 (TWO) TIMES DAILY FOR 90 DAYS)
     Route: 048
     Dates: start: 20190528
  2. LYRICA [Suspect]
     Active Substance: PREGABALIN
     Indication: Type 2 diabetes mellitus
     Dosage: 150 MG, 2X/DAY
     Route: 048

REACTIONS (3)
  - Tremor [Unknown]
  - Pain [Unknown]
  - Pain in extremity [Unknown]
